FAERS Safety Report 11797899 (Version 1)
Quarter: 2015Q4

REPORT INFORMATION
  Report Type: Spontaneous
  Country: US (occurrence: None)
  Receive Date: 20151202
  Receipt Date: 20151202
  Transmission Date: 20160305
  Serious: Yes (Disabling)
  Sender: FDA-Public Use
  Company Number: None

PATIENT
  Age: 30 Year
  Sex: Female
  Weight: 48.99 kg

DRUGS (4)
  1. BOTOX [Suspect]
     Active Substance: ONABOTULINUMTOXINA
     Indication: MIGRAINE
     Dosage: INJECTIONS?EVERY 12 WEEKS ?GIVEN INTO/UNDER THE SKIN
     Route: 058
     Dates: start: 20151123
  2. CYCLOBENAZPRENE [Concomitant]
  3. PROMETHAZENE [Concomitant]
  4. TRAMADOL. [Concomitant]
     Active Substance: TRAMADOL

REACTIONS (3)
  - Muscle tightness [None]
  - Muscular weakness [None]
  - Discomfort [None]

NARRATIVE: CASE EVENT DATE: 20151126
